FAERS Safety Report 10146995 (Version 1)
Quarter: 2014Q2

REPORT INFORMATION
  Report Type: Spontaneous
  Country: US (occurrence: None)
  Receive Date: 20140430
  Receipt Date: 20140430
  Transmission Date: 20141212
  Serious: Yes (Hospitalization)
  Sender: FDA-Public Use
  Company Number: None

PATIENT
  Age: 72 Year
  Sex: Female

DRUGS (16)
  1. DIGOXIN [Suspect]
     Indication: CARDIAC FAILURE CONGESTIVE
     Route: 048
     Dates: start: 20130709, end: 20130709
  2. ATENOLOL [Concomitant]
  3. SPIRONOLACTONE [Concomitant]
  4. FUROSEMIDE [Concomitant]
  5. ENALAPRIL [Concomitant]
  6. GLIPIZIDE [Concomitant]
  7. METFORMIN [Concomitant]
  8. ACETYLCYSTEINE [Concomitant]
  9. HYDROMORPHONE [Concomitant]
  10. EZETIMIBE [Concomitant]
  11. ROSUVASTATIN [Concomitant]
  12. RANITIDINE [Concomitant]
  13. ALBUTEROL [Concomitant]
  14. ASPIRIN [Concomitant]
  15. ATORVASTATIN [Concomitant]
  16. NIACIN [Concomitant]

REACTIONS (7)
  - Dyspnoea [None]
  - Dyspnoea exertional [None]
  - Atrioventricular block [None]
  - Toxicity to various agents [None]
  - Chest pain [None]
  - Heart rate increased [None]
  - Hypertension [None]
